FAERS Safety Report 5205916-4 (Version None)
Quarter: 2006Q4

REPORT INFORMATION
  Report Type: 
  Country: None (occurrence: None)
  Receive Date: 20061026
  Receipt Date: 20060907
  Transmission Date: 20070319
  Serious: No
  Sender: FDA-Public Use
  Company Number: 2006093063

PATIENT
  Age: 53 Year
  Sex: Female
  Weight: 67.1324 kg

DRUGS (18)
  1. LYRICA [Suspect]
     Indication: DIABETIC NEUROPATHY
     Dosage: 150 MG (75 MG, 2 IN 1 D), UNKNOWN
     Dates: start: 20060601
  2. NEURONTIN [Suspect]
     Indication: DIABETIC NEUROPATHY
     Dosage: 800 MG (800 MG, 1 IN 1 D), UNKNOWN
     Dates: start: 20000101, end: 20060601
  3. METHADONE HCL [Concomitant]
  4. TRILEPTAL [Concomitant]
  5. ALDACTONE [Concomitant]
  6. CALCITROL (CALCIUM CARBONATE, ERGOCALCIFEROL, RETINOL) [Concomitant]
  7. TRIMETHOPRIM [Concomitant]
  8. COATED ASPIRIN (ACETYLSALICYLIC ACID) [Concomitant]
  9. OSCAL (CALCIUM CARBONATE) [Concomitant]
  10. LASIX [Concomitant]
  11. SYNTHROID [Concomitant]
  12. METFORMIN HCL [Concomitant]
  13. FLOMAX [Concomitant]
  14. TRAZODONE HCL [Concomitant]
  15. RESTORIL [Concomitant]
  16. XANAX [Concomitant]
  17. ARTHROTEC [Concomitant]
  18. PREMARIN [Concomitant]

REACTIONS (4)
  - DRUG INEFFECTIVE [None]
  - DYSKINESIA [None]
  - FATIGUE [None]
  - SOMNOLENCE [None]
